FAERS Safety Report 17681237 (Version 1)
Quarter: 2020Q2

REPORT INFORMATION
  Report Type: Spontaneous
  Country: US (occurrence: US)
  Receive Date: 20200417
  Receipt Date: 20200417
  Transmission Date: 20200714
  Serious: Yes (Life-Threatening, Hospitalization, Other)
  Sender: FDA-Public Use
  Company Number: US-BAXTER-2020BAX007678

PATIENT
  Age: 2 Month
  Sex: Male
  Weight: 12 kg

DRUGS (6)
  1. LIDOCAINE. [Suspect]
     Active Substance: LIDOCAINE
     Indication: NERVE BLOCK
     Dosage: SINGLESHOT EXTRACONAL BLOCK, WITH OF BUPIVACAINE AND OF LIDOCAINE AND HYALURONIDASE (TOTAL OF 3 ML).
     Route: 065
  2. HYALURONIDASE [Concomitant]
     Active Substance: HYALURONIDASE
     Indication: POSTOPERATIVE ANALGESIA
  3. HYALURONIDASE [Concomitant]
     Active Substance: HYALURONIDASE
     Indication: PRODUCT USED FOR UNKNOWN INDICATION
     Dosage: HYALURONIDASE 7.5 IU/ML (TOTAL OF 3 ML)
     Route: 065
  4. LIDOCAINE. [Suspect]
     Active Substance: LIDOCAINE
     Indication: POSTOPERATIVE ANALGESIA
     Route: 065
  5. BUPIVACAINE HYDROCHLORIDE IN 8.25% DEXTROSE INJECTION USP [Suspect]
     Active Substance: BUPIVACAINE HYDROCHLORIDE
     Indication: NERVE BLOCK
     Dosage: SINGLESHOT EXTRACONAL BLOCK, WITH OF BUPIVACAINE AND OF LIDOCAINE AND HYALURONIDASE (TOTAL OF 3 ML).
     Route: 065
  6. BUPIVACAINE HYDROCHLORIDE IN 8.25% DEXTROSE INJECTION USP [Suspect]
     Active Substance: BUPIVACAINE HYDROCHLORIDE
     Indication: POSTOPERATIVE ANALGESIA
     Route: 065

REACTIONS (8)
  - Oxygen saturation decreased [Recovering/Resolving]
  - Extra dose administered [Unknown]
  - Electrocardiogram T wave amplitude increased [Recovered/Resolved]
  - Electrocardiogram ST segment elevation [Recovered/Resolved]
  - Generalised tonic-clonic seizure [Recovered/Resolved]
  - Tachycardia [Recovered/Resolved]
  - Local anaesthetic systemic toxicity [Recovering/Resolving]
  - Agitation [Recovering/Resolving]
